FAERS Safety Report 7533135-5 (Version None)
Quarter: 2011Q2

REPORT INFORMATION
  Report Type: 
  Country: None (occurrence: None)
  Receive Date: 20110608
  Receipt Date: 20110606
  Transmission Date: 20111010
  Serious: Yes (Life-Threatening, Hospitalization, Other)
  Sender: FDA-Public Use
  Company Number: BR-PFIZER INC-2011110407

PATIENT
  Age: 45 Year
  Sex: Male
  Weight: 102 kg

DRUGS (8)
  1. COMPLEX B [Concomitant]
     Dosage: UNK
  2. LONITEN [Suspect]
     Indication: BLOOD PRESSURE INCREASED
     Dosage: 10 MG, 2X/DAY
     Route: 048
     Dates: start: 20010101, end: 20110501
  3. CALCIUM CARBONATE [Concomitant]
     Dosage: UNK
  4. CLONIDINE HYDROCHLORIDE [Concomitant]
     Dosage: 0.150 MG
  5. PROPRANOLOL [Concomitant]
     Indication: BLOOD PRESSURE MANAGEMENT
     Dosage: 40 MG, UNK
     Dates: start: 20110501
  6. ADALAT - SLOW RELEASE [Concomitant]
     Indication: BLOOD PRESSURE MANAGEMENT
     Dosage: UNK
     Dates: start: 20110501
  7. RENAGEL [Concomitant]
     Dosage: UNK
  8. HYDRALAZINE [Concomitant]
     Dosage: 25 MG, UNK

REACTIONS (3)
  - MOUTH HAEMORRHAGE [None]
  - FEELING ABNORMAL [None]
  - BLOOD PRESSURE INCREASED [None]
